FAERS Safety Report 10908642 (Version 3)
Quarter: 2015Q2

REPORT INFORMATION
  Report Type: Spontaneous
  Country: JP (occurrence: JP)
  Receive Date: 20150312
  Receipt Date: 20150512
  Transmission Date: 20150821
  Serious: Yes (Death, Hospitalization)
  Sender: FDA-Public Use
  Company Number: PHJP2015JP002690

PATIENT
  Age: 76 Year
  Sex: Male

DRUGS (2)
  1. EXELON PATCH [Suspect]
     Active Substance: RIVASTIGMINE
     Dosage: 6.9 MG /24HOUR (PATCH 7.5, 13.5MG)
     Route: 062
     Dates: start: 201412
  2. EXELON PATCH [Suspect]
     Active Substance: RIVASTIGMINE
     Indication: DEMENTIA ALZHEIMER^S TYPE
     Dosage: UNK
     Route: 062
     Dates: start: 201410

REACTIONS (4)
  - Varicose vein ruptured [Fatal]
  - Bleeding varicose vein [Fatal]
  - Peptic ulcer [Unknown]
  - Haematemesis [Fatal]
